FAERS Safety Report 5696105-8 (Version None)
Quarter: 2008Q2

REPORT INFORMATION
  Report Type: 
  Country: None (occurrence: None)
  Receive Date: 20080407
  Receipt Date: 20080325
  Transmission Date: 20081010
  Serious: Yes (Other)
  Sender: FDA-Public Use
  Company Number: FR-ROCHE-549637

PATIENT
  Sex: Male
  Weight: 65 kg

DRUGS (4)
  1. PEGASYS [Suspect]
     Dosage: FORM: INJECTABLE SOLUTION; DOSAGE REPORTED: 90
     Route: 058
     Dates: start: 20070601
  2. PEGASYS [Suspect]
     Dosage: DOSAGE: 135; DOSAGE INCREASED
     Route: 058
  3. PEGASYS [Suspect]
     Route: 058
     Dates: start: 20070805, end: 20080115
  4. KARDEGIC [Concomitant]
     Indication: PHLEBITIS

REACTIONS (2)
  - CATARACT [None]
  - DRUG INEFFECTIVE [None]
